FAERS Safety Report 25005916 (Version 1)
Quarter: 2025Q1

REPORT INFORMATION
  Report Type: Spontaneous
  Country: US (occurrence: US)
  Receive Date: 20250224
  Receipt Date: 20250224
  Transmission Date: 20250408
  Serious: Yes (Hospitalization)
  Sender: AMGEN
  Company Number: US-AMGEN-USASP2025033840

PATIENT
  Age: 77 Year
  Sex: Female

DRUGS (2)
  1. TRASTUZUMAB [Suspect]
     Active Substance: TRASTUZUMAB
     Indication: Breast cancer stage IV
     Route: 065
     Dates: start: 2023
  2. CAPECITABINE [Concomitant]
     Active Substance: CAPECITABINE
     Route: 065

REACTIONS (9)
  - Embolic stroke [Recovered/Resolved]
  - Blood pressure systolic increased [Unknown]
  - Cerebral artery occlusion [Unknown]
  - Blood creatine increased [Unknown]
  - Cardiac ventricular thrombosis [Recovered/Resolved]
  - Stress cardiomyopathy [Recovered/Resolved]
  - Left ventricular dysfunction [Recovered/Resolved]
  - Blood urea increased [Unknown]
  - Aspartate aminotransferase increased [Unknown]
